FAERS Safety Report 4323560-8 (Version None)
Quarter: 2004Q1

REPORT INFORMATION
  Report Type: 
  Country: None (occurrence: None)
  Receive Date: 20040325
  Receipt Date: 20040319
  Transmission Date: 20041129
  Serious: Yes (Hospitalization)
  Sender: FDA-Public Use
  Company Number: WAES 0403FRA00075

PATIENT
  Age: 43 Year
  Sex: Female
  Weight: 130 kg

DRUGS (2)
  1. METFORMIN HYDROCHLORIDE [Concomitant]
     Indication: DIABETES MELLITUS NON-INSULIN-DEPENDENT
     Route: 048
     Dates: end: 20040301
  2. VIOXX [Suspect]
     Indication: OSTEOARTHRITIS
     Route: 048
     Dates: start: 20010101, end: 20040301

REACTIONS (1)
  - ALVEOLITIS ALLERGIC [None]
